FAERS Safety Report 7693637-8 (Version None)
Quarter: 2011Q3

REPORT INFORMATION
  Report Type: 
  Country: None (occurrence: None)
  Receive Date: 20110819
  Receipt Date: 20110810
  Transmission Date: 20111222
  Serious: Yes (Hospitalization)
  Sender: FDA-Public Use
  Company Number: JP-ROCHE-760357

PATIENT
  Sex: Male
  Weight: 71 kg

DRUGS (6)
  1. PACLITAXEL [Suspect]
     Indication: LUNG ADENOCARCINOMA METASTATIC
     Dosage: NOTE: DOSAGE IS UNCERTAIN. DOSE: 200 MG/M2
     Route: 041
     Dates: start: 20101209, end: 20110124
  2. LANSOPRAZOLE [Concomitant]
     Route: 048
     Dates: start: 20101209
  3. AVASTIN [Suspect]
     Indication: LUNG ADENOCARCINOMA METASTATIC
     Route: 041
     Dates: start: 20101209, end: 20110127
  4. IRBESARTAN [Concomitant]
     Route: 048
     Dates: start: 20110129, end: 20110129
  5. CARBOPLATIN [Concomitant]
     Dosage: NOTE: DOSAGE IS UNCERTAIN.
     Route: 041
     Dates: start: 20101209, end: 20110124
  6. CRESTOR [Concomitant]
     Route: 048

REACTIONS (2)
  - ATRIOVENTRICULAR BLOCK COMPLETE [None]
  - CONSTIPATION [None]
